FAERS Safety Report 6376346-7 (Version None)
Quarter: 2009Q3

REPORT INFORMATION
  Report Type: 
  Country: None (occurrence: None)
  Receive Date: 20090922
  Receipt Date: 20090922
  Transmission Date: 20100115
  Serious: Yes (Hospitalization, Other)
  Sender: FDA-Public Use
  Company Number: None

PATIENT
  Age: 42 Year
  Sex: Female
  Weight: 68.4932 kg

DRUGS (1)
  1. FLAGYL [Suspect]
     Indication: DIVERTICULITIS
     Dosage: 250MG
     Dates: start: 20090331, end: 20090404

REACTIONS (3)
  - CLOSTRIDIAL INFECTION [None]
  - IMPAIRED WORK ABILITY [None]
  - NEUROPATHY PERIPHERAL [None]
